FAERS Safety Report 18388298 (Version 4)
Quarter: 2022Q4

REPORT INFORMATION
  Report Type: Report from Study
  Country: US (occurrence: US)
  Receive Date: 20201015
  Receipt Date: 20221205
  Transmission Date: 20230113
  Serious: Yes (Hospitalization, Other)
  Sender: FDA-Public Use
  Company Number: US-EXELIXIS-XL18420032846

PATIENT
  Age: 45 Year
  Sex: Male
  Weight: 113.9 kg

DRUGS (13)
  1. CABOZANTINIB [Suspect]
     Active Substance: CABOZANTINIB
     Indication: Testicular cancer metastatic
     Dosage: 40 MG, QD
     Route: 048
     Dates: start: 20200526, end: 20200824
  2. CABOZANTINIB [Suspect]
     Active Substance: CABOZANTINIB
     Dosage: 40 MG, QD
     Route: 048
  3. NIVOLUMAB [Suspect]
     Active Substance: NIVOLUMAB
     Indication: Testicular cancer metastatic
     Dosage: 3 MG/KG ON DAY 1 (CYCLE 1-4, 21 DAYS )
     Route: 042
     Dates: start: 20200526
  4. NIVOLUMAB [Suspect]
     Active Substance: NIVOLUMAB
     Dosage: 480 MG ON DAY 1 (CYCLE 5, 28 DAYS )
     Route: 042
     Dates: start: 20200818
  5. IPILIMUMAB [Suspect]
     Active Substance: IPILIMUMAB
     Indication: Testicular cancer metastatic
     Dosage: 1 MG/KG ON DAY 1 (CYCLE 1-4, 21 DAYS )
     Route: 042
     Dates: start: 20200526
  6. TAMSULOSIN HYDROCHLORIDE [Concomitant]
     Active Substance: TAMSULOSIN HYDROCHLORIDE
     Dosage: UNK
  7. GABAPENTIN [Concomitant]
     Active Substance: GABAPENTIN
     Dosage: UNK
  8. HOMATROPINE METHYLBROMIDE\HYDROCODONE BITARTRATE [Concomitant]
     Active Substance: HOMATROPINE METHYLBROMIDE\HYDROCODONE BITARTRATE
     Dosage: UNK
  9. OXYCODONE [Concomitant]
     Active Substance: OXYCODONE
     Dosage: UNK
  10. MINERALS\VITAMINS [Concomitant]
     Active Substance: MINERALS\VITAMINS
     Dosage: UNK
  11. CYMBALTA [Concomitant]
     Active Substance: DULOXETINE HYDROCHLORIDE
     Dosage: UNK
  12. PROTONIX [Concomitant]
     Active Substance: PANTOPRAZOLE SODIUM
     Dosage: UNK
  13. TESSALON [Concomitant]
     Active Substance: BENZONATATE
     Dosage: UNK

REACTIONS (7)
  - Acute respiratory failure [Unknown]
  - Atypical pneumonia [Unknown]
  - Dyspnoea [Recovered/Resolved]
  - Pulmonary embolism [Unknown]
  - Palmar-plantar erythrodysaesthesia syndrome [Unknown]
  - Myocarditis [Recovering/Resolving]
  - Pneumonitis [Unknown]

NARRATIVE: CASE EVENT DATE: 20200801
